FAERS Safety Report 24968585 (Version 1)
Quarter: 2025Q1

REPORT INFORMATION
  Report Type: Spontaneous
  Country: KP (occurrence: KP)
  Receive Date: 20250214
  Receipt Date: 20250214
  Transmission Date: 20250409
  Serious: Yes (Other)
  Sender: AZURITY PHARMACEUTICALS
  Company Number: KP-AZURITY PHARMACEUTICALS, INC.-AZR202501-000498

PATIENT
  Sex: Male

DRUGS (3)
  1. DEXMEDETOMIDINE HYDROCHLORIDE [Suspect]
     Active Substance: DEXMEDETOMIDINE HYDROCHLORIDE
     Indication: Sedation
     Route: 065
     Dates: start: 20230715, end: 20230716
  2. DEXMEDETOMIDINE HYDROCHLORIDE [Suspect]
     Active Substance: DEXMEDETOMIDINE HYDROCHLORIDE
     Indication: Shock
  3. REMIFENTANIL [Concomitant]
     Active Substance: REMIFENTANIL
     Indication: Sedation
     Route: 065

REACTIONS (2)
  - Hypothermia [Recovered/Resolved]
  - Bradycardia [Recovered/Resolved]

NARRATIVE: CASE EVENT DATE: 20230701
